FAERS Safety Report 9874683 (Version 1)
Quarter: 2014Q1

REPORT INFORMATION
  Report Type: Spontaneous
  Country: US (occurrence: None)
  Receive Date: 20140205
  Receipt Date: 20140205
  Transmission Date: 20141002
  Serious: No
  Sender: FDA-Public Use
  Company Number: None

PATIENT
  Age: 30 Year
  Sex: Female
  Weight: 107.5 kg

DRUGS (7)
  1. DULOXETINE HCL [Suspect]
     Indication: DEPRESSION
     Route: 048
     Dates: start: 20140108, end: 20140204
  2. TRINESSA [Concomitant]
  3. DULOXETINE [Concomitant]
  4. LISINOPRIL [Concomitant]
  5. LYSINE [Concomitant]
  6. IBUPROFEN [Concomitant]
  7. VITAMIN D [Concomitant]

REACTIONS (6)
  - Product substitution issue [None]
  - Depression [None]
  - Malaise [None]
  - Irritability [None]
  - Apathy [None]
  - Drug ineffective [None]
